FAERS Safety Report 5700331-9 (Version None)
Quarter: 2008Q2

REPORT INFORMATION
  Report Type: 
  Country: None (occurrence: None)
  Receive Date: 20080410
  Receipt Date: 20080404
  Transmission Date: 20081010
  Serious: Yes (Other)
  Sender: FDA-Public Use
  Company Number: B0515833A

PATIENT
  Age: 79 Year
  Sex: Male
  Weight: 67 kg

DRUGS (8)
  1. AUGMENTIN '125' [Suspect]
     Indication: RESPIRATORY TRACT INFECTION
     Route: 048
     Dates: start: 20080307, end: 20080313
  2. OXAZEPAM [Concomitant]
     Dosage: 5MG THREE TIMES PER DAY
     Route: 048
  3. DIPIPERON [Concomitant]
     Route: 048
  4. PARACETAMOL [Concomitant]
     Dosage: 500MG FOUR TIMES PER DAY
     Route: 048
  5. MONOCEDOCARD RETARD [Concomitant]
     Dosage: 50MG PER DAY
     Route: 048
  6. CLONIDINE HCL [Concomitant]
     Dosage: 25UG TWICE PER DAY
     Route: 048
  7. ACETYLSALICYLIC ACID SRT [Concomitant]
     Dosage: 80MG PER DAY
     Route: 048
  8. BISOPROLOL FUMARATE [Concomitant]
     Dosage: 5MG PER DAY
     Route: 048

REACTIONS (1)
  - NEUTROPENIA [None]
